FAERS Safety Report 9999793 (Version 1)
Quarter: 2014Q1

REPORT INFORMATION
  Report Type: Spontaneous
  Country: JP (occurrence: JP)
  Receive Date: 20140312
  Receipt Date: 20140312
  Transmission Date: 20141002
  Serious: Yes (Life-Threatening, Hospitalization)
  Sender: FDA-Public Use
  Company Number: JP-WATSON-2014-04056

PATIENT
  Age: 64 Year
  Sex: Male
  Weight: 47 kg

DRUGS (2)
  1. ACETYLSALICYLIC ACID (UNKNOWN) [Suspect]
     Indication: ISCHAEMIC HEART DISEASE PROPHYLAXIS
     Dosage: UNK
     Route: 065
  2. HEPARIN (UNKNOWN) [Suspect]
     Indication: HAEMODIALYSIS
     Dosage: UNK, INTERMITTENT USE DURING HEMODIALYSIS SESSIONS
     Route: 065

REACTIONS (2)
  - Tumour rupture [Recovered/Resolved]
  - Shock haemorrhagic [Recovered/Resolved]
